FAERS Safety Report 15741895 (Version 3)
Quarter: 2019Q1

REPORT INFORMATION
  Report Type: Report from Study
  Country: None (occurrence: FR)
  Receive Date: 20181219
  Receipt Date: 20190108
  Transmission Date: 20190417
  Serious: Yes (Death, Hospitalization)
  Sender: FDA-Public Use
  Company Number: FR-ABBVIE-18P-056-2596686-00

PATIENT
  Age: 59 Year
  Sex: Male

DRUGS (3)
  1. ATEZOLIZUMAB. [Concomitant]
     Active Substance: ATEZOLIZUMAB
     Indication: LYMPHOMA
     Dosage: ON DAY 2 OF EACH 21 DAY CYCLE DURING 18 MONTHS (24 CYCLES)
     Route: 065
     Dates: start: 20181129
  2. OBINUTUZUMAB. [Concomitant]
     Active Substance: OBINUTUZUMAB
     Indication: LYMPHOMA
     Route: 042
     Dates: start: 20181128, end: 20181205
  3. VENETOCLAX. [Suspect]
     Active Substance: VENETOCLAX
     Indication: LYMPHOMA
     Dosage: FROM DAY 8 OF CYCLE 1, EVERY DAY DURING 18 MONTHS
     Route: 048
     Dates: start: 20181205, end: 20181211

REACTIONS (1)
  - Gastric perforation [Fatal]

NARRATIVE: CASE EVENT DATE: 20181210
